FAERS Safety Report 15635752 (Version 1)
Quarter: 2018Q4

REPORT INFORMATION
  Report Type: Spontaneous
  Country: US (occurrence: US)
  Receive Date: 20181120
  Receipt Date: 20181120
  Transmission Date: 20190205
  Serious: No
  Sender: FDA-Public Use
  Company Number: US-AJANTA PHARMA USA INC.-2059044

PATIENT
  Age: 73 Year
  Sex: Female

DRUGS (12)
  1. FEXOFENADINE [Concomitant]
     Active Substance: FEXOFENADINE\FEXOFENADINE HYDROCHLORIDE
  2. SINGULAIR [Concomitant]
     Active Substance: MONTELUKAST SODIUM
  3. ALOSETRON HYDROCHLORIDE. [Concomitant]
     Active Substance: ALOSETRON HYDROCHLORIDE
  4. CYANOCOBALAMIN. [Concomitant]
     Active Substance: CYANOCOBALAMIN
  5. BUDESONIDE. [Concomitant]
     Active Substance: BUDESONIDE
  6. VAGIFEM [Concomitant]
     Active Substance: ESTRADIOL
  7. HYOSCYAMINE. [Concomitant]
     Active Substance: HYOSCYAMINE
  8. OMEPRAZOLE ANDSODIUM BICARBONATE [Suspect]
     Active Substance: OMEPRAZOLE\SODIUM BICARBONATE
     Indication: GASTROOESOPHAGEAL REFLUX DISEASE
     Route: 048
     Dates: start: 20180816, end: 201808
  9. ACUVAIL [Concomitant]
     Active Substance: KETOROLAC TROMETHAMINE
     Route: 047
  10. VENTOLIN HFA [Concomitant]
     Active Substance: ALBUTEROL SULFATE
  11. OLOPATADINE. [Concomitant]
     Active Substance: OLOPATADINE
     Route: 045
  12. CLINDAMYCIN. [Concomitant]
     Active Substance: CLINDAMYCIN
     Route: 061

REACTIONS (4)
  - Abdominal discomfort [Recovered/Resolved]
  - Product substitution issue [Recovered/Resolved]
  - Tongue discomfort [Recovered/Resolved]
  - Reaction to excipient [Recovered/Resolved]

NARRATIVE: CASE EVENT DATE: 201808
